FAERS Safety Report 20492524 (Version 2)
Quarter: 2022Q3

REPORT INFORMATION
  Report Type: Report from Study
  Country: US (occurrence: US)
  Receive Date: 20220219
  Receipt Date: 20220705
  Transmission Date: 20221026
  Serious: Yes (Hospitalization, Other)
  Sender: FDA-Public Use
  Company Number: US-NOVARTISPH-NVSC2022US037521

PATIENT
  Age: 74 Year
  Sex: Male
  Weight: 97.6 kg

DRUGS (8)
  1. LUTATHERA [Suspect]
     Active Substance: LUTETIUM OXODOTREOTIDE LU-177
     Indication: Phaeochromocytoma
     Dosage: 194.25 OT, Q8W (EVERY 8 WEEKS) (STRENGTH: 370 MBQ/ML)
     Route: 042
     Dates: start: 20200212, end: 20200922
  2. CURCUWID KURKUMIN [Concomitant]
     Indication: Product used for unknown indication
     Dosage: 25 MG
     Route: 065
  3. ASPIRIN [Concomitant]
     Active Substance: ASPIRIN
     Indication: Product used for unknown indication
     Dosage: 162 MG
     Route: 065
  4. ATENOLOL [Concomitant]
     Active Substance: ATENOLOL
     Indication: Product used for unknown indication
     Dosage: 25 MG
     Route: 065
  5. FISH OIL [Concomitant]
     Active Substance: FISH OIL
     Indication: Product used for unknown indication
     Dosage: 1200 MG
     Route: 065
  6. VITAMIN D3 [Concomitant]
     Active Substance: CHOLECALCIFEROL
     Indication: Product used for unknown indication
     Dosage: 1000 IU
     Route: 065
  7. MIRALAX [Concomitant]
     Active Substance: POLYETHYLENE GLYCOL 3350
     Indication: Product used for unknown indication
     Route: 065
  8. COLACE [Concomitant]
     Active Substance: DOCUSATE SODIUM
     Indication: Product used for unknown indication
     Route: 065

REACTIONS (6)
  - Muscular weakness [Recovered/Resolved]
  - Confusional state [Recovered/Resolved]
  - Pyrexia [Recovered/Resolved]
  - Urinary incontinence [Recovered/Resolved]
  - Spinal osteoarthritis [Unknown]
  - Platelet count decreased [Unknown]
